FAERS Safety Report 5775066-7 (Version None)
Quarter: 2008Q2

REPORT INFORMATION
  Report Type: 
  Country: None (occurrence: None)
  Receive Date: 20080616
  Receipt Date: 20080616
  Transmission Date: 20081010
  Serious: Yes (Other)
  Sender: FDA-Public Use
  Company Number: None

PATIENT
  Age: 52 Year
  Sex: Female
  Weight: 76.2043 kg

DRUGS (2)
  1. LEVAQUIN [Suspect]
     Indication: COUGH
     Dosage: ONE ORAL DAILY BUCCAL
     Route: 002
     Dates: start: 20080312, end: 20080317
  2. LEVAQUIN [Suspect]
     Indication: SINUS DISORDER
     Dosage: ONE ORAL DAILY BUCCAL
     Route: 002
     Dates: start: 20080312, end: 20080317

REACTIONS (4)
  - ANXIETY [None]
  - FATIGUE [None]
  - INSOMNIA [None]
  - MEMORY IMPAIRMENT [None]
